FAERS Safety Report 7637906-6 (Version None)
Quarter: 2011Q3

REPORT INFORMATION
  Report Type: 
  Country: None (occurrence: None)
  Receive Date: 20110720
  Receipt Date: 20110705
  Transmission Date: 20111222
  Serious: Yes (Other)
  Sender: FDA-Public Use
  Company Number: AUR-APL-2011-04122

PATIENT
  Age: 50 Year
  Sex: Female
  Weight: 168 kg

DRUGS (7)
  1. CEFDINIR [Suspect]
     Indication: SINUSITIS
     Dosage: 600 MG (300 MG,2 IN 1 D)
     Dates: start: 20110701
  2. TIMOLOL MALEATE [Concomitant]
  3. FEXOFENADINE HCL [Concomitant]
  4. LEVOTHYROXINE SODIUM [Concomitant]
  5. EFFEXOR [Concomitant]
  6. INSULIN (INSULIN) [Concomitant]
  7. ZOCOR [Concomitant]

REACTIONS (1)
  - BLOOD GLUCOSE INCREASED [None]
